FAERS Safety Report 6328725-1 (Version None)
Quarter: 2009Q3

REPORT INFORMATION
  Report Type: 
  Country: None (occurrence: None)
  Receive Date: 20090826
  Receipt Date: 20090814
  Transmission Date: 20100115
  Serious: Yes (Hospitalization)
  Sender: FDA-Public Use
  Company Number: IT-B.I. PHARMACEUTICALS,INC./RIDGEFIELD-2009-DE-05434GD

PATIENT
  Age: 77 Year
  Sex: Male

DRUGS (5)
  1. CLONIDINE [Suspect]
     Indication: NERVE BLOCK
     Dosage: 30 MCG
  2. ROPIVACAINE HYDROCHLORIDE [Suspect]
     Indication: NERVE BLOCK
     Dosage: 125 MG
  3. ROPIVACAINE HYDROCHLORIDE [Suspect]
     Indication: SPINAL ANAESTHESIA
     Dosage: 12.5 MG
  4. ROPIVACAINE HYDROCHLORIDE [Suspect]
     Indication: POSTOPERATIVE ANALGESIA
     Dosage: 2 MG/ML AT 8 ML/H
  5. ENOXAPARIN SODIUM [Suspect]
     Indication: DEEP VEIN THROMBOSIS
     Dosage: 8000 U

REACTIONS (3)
  - ABDOMINAL PAIN LOWER [None]
  - HAEMOGLOBIN DECREASED [None]
  - RETROPERITONEAL HAEMATOMA [None]
